FAERS Safety Report 17510054 (Version 2)
Quarter: 2020Q2

REPORT INFORMATION
  Report Type: Spontaneous
  Country: US (occurrence: US)
  Receive Date: 20200306
  Receipt Date: 20200429
  Transmission Date: 20200713
  Serious: No
  Sender: FDA-Public Use
  Company Number: US-PFIZER INC-2020095578

PATIENT
  Age: 64 Year
  Sex: Female
  Weight: 69.84 kg

DRUGS (11)
  1. CALCIUM [Concomitant]
     Active Substance: CALCIUM
     Dosage: UNK
  2. SYNTHROID [Suspect]
     Active Substance: LEVOTHYROXINE SODIUM
     Dosage: 100 MG, 1X/DAY
  3. XELJANZ XR [Suspect]
     Active Substance: TOFACITINIB CITRATE
     Indication: RHEUMATOID ARTHRITIS
     Dosage: 11 MG, 1X/DAY
     Dates: start: 201905
  4. SYNTHROID [Suspect]
     Active Substance: LEVOTHYROXINE SODIUM
     Indication: THYROID DISORDER
     Dosage: UNK, 1X/DAY
  5. TURMERIC [CURCUMA LONGA] [Concomitant]
     Active Substance: HERBALS\TURMERIC
     Dosage: UNK
  6. FOLIC ACID. [Concomitant]
     Active Substance: FOLIC ACID
     Dosage: UNK
  7. XELJANZ [Suspect]
     Active Substance: TOFACITINIB CITRATE
     Dosage: 5 MG, 2X/DAY
     Dates: start: 202003
  8. VITAMINS C [Concomitant]
     Dosage: UNK
  9. METHOTREXATE. [Concomitant]
     Active Substance: METHOTREXATE
     Dosage: UNK, WEEKLY (3-2.5 MG TABLETS PER WEEK)
  10. VITAMIN B12 [Concomitant]
     Active Substance: CYANOCOBALAMIN
     Dosage: UNK
  11. VIT D [Concomitant]
     Active Substance: VITAMIN D NOS
     Dosage: UNK

REACTIONS (7)
  - Migraine [Unknown]
  - Eye pain [Recovering/Resolving]
  - Vitreous floaters [Recovering/Resolving]
  - Malaise [Unknown]
  - Photopsia [Recovering/Resolving]
  - Thyroid disorder [Recovered/Resolved]
  - Sinus disorder [Unknown]
